FAERS Safety Report 9685686 (Version 1)
Quarter: 2013Q4

REPORT INFORMATION
  Report Type: Spontaneous
  Country: US (occurrence: US)
  Receive Date: 20131113
  Receipt Date: 20131113
  Transmission Date: 20140711
  Serious: No
  Sender: FDA-Public Use
  Company Number: US-PFIZER INC-2013321685

PATIENT
  Sex: Female

DRUGS (4)
  1. ENBREL [Suspect]
     Indication: RHEUMATOID ARTHRITIS
     Dosage: UNK
  2. METHOTREXATE SODIUM [Suspect]
     Dosage: UNK
  3. CIMZIA [Concomitant]
     Dosage: UNK
  4. PREDNISONE [Concomitant]
     Dosage: 2 MG, UNK

REACTIONS (2)
  - Alopecia [Unknown]
  - Hair disorder [Unknown]
